FAERS Safety Report 22246260 (Version 2)
Quarter: 2023Q2

REPORT INFORMATION
  Report Type: Report from Study
  Country: FR (occurrence: FR)
  Receive Date: 20230424
  Receipt Date: 20230428
  Transmission Date: 20230721
  Serious: Yes (Death)
  Sender: FDA-Public Use
  Company Number: FR-DSJP-DSE-2023-116150

PATIENT
  Age: 60 Year
  Sex: Male
  Weight: 40 kg

DRUGS (3)
  1. ENHERTU [Suspect]
     Active Substance: FAM-TRASTUZUMAB DERUXTECAN-NXKI
     Indication: HER2 positive gastric cancer
     Dosage: 6.4 MG/KG, CYCLIC
     Route: 065
     Dates: start: 20230302
  2. ENHERTU [Suspect]
     Active Substance: FAM-TRASTUZUMAB DERUXTECAN-NXKI
     Indication: Metastatic gastric cancer
  3. UNSPECIFIED INGREDIENT [Concomitant]
     Active Substance: UNSPECIFIED INGREDIENT
     Indication: Antiemetic supportive care
     Dosage: UNK
     Route: 065

REACTIONS (3)
  - Cerebellar haematoma [Fatal]
  - Brain herniation [Fatal]
  - Fall [Fatal]

NARRATIVE: CASE EVENT DATE: 20230301
